FAERS Safety Report 8612527-7 (Version None)
Quarter: 2012Q3

REPORT INFORMATION
  Report Type: 
  Country: None (occurrence: None)
  Receive Date: 20120822
  Receipt Date: 20111004
  Transmission Date: 20120928
  Serious: No
  Sender: FDA-Public Use
  Company Number: US-ASTRAZENECA-2011SE59690

PATIENT
  Age: 29 Year
  Sex: Female
  Weight: 65.8 kg

DRUGS (5)
  1. LOESTRIN 1.5/30 [Concomitant]
     Indication: ORAL CONTRACEPTION
  2. AMRIX [Concomitant]
  3. PROAIR HFA [Concomitant]
     Indication: INHALATION THERAPY
  4. SYMBICORT [Suspect]
     Indication: ASTHMA
     Dosage: 160-4.5 MCG BID
     Route: 055
     Dates: start: 20110929
  5. DIDREX [Concomitant]
     Indication: ORAL HERPES

REACTIONS (2)
  - MOUTH ULCERATION [None]
  - MIGRAINE [None]
